FAERS Safety Report 8521894-4 (Version None)
Quarter: 2012Q3

REPORT INFORMATION
  Report Type: 
  Country: None (occurrence: None)
  Receive Date: 20120719
  Receipt Date: 20120710
  Transmission Date: 20120928
  Serious: Yes (Other)
  Sender: FDA-Public Use
  Company Number: US-PFIZER INC-2012165726

PATIENT
  Sex: Female
  Weight: 68.027 kg

DRUGS (1)
  1. CHAPSTICK CLASSIC [Suspect]
     Indication: LIP DRY
     Dosage: UNK
     Dates: start: 20120707, end: 20120701

REACTIONS (3)
  - LIP SWELLING [None]
  - LIP PRURITUS [None]
  - ORAL DISCOMFORT [None]
